FAERS Safety Report 21029029 (Version 3)
Quarter: 2022Q3

REPORT INFORMATION
  Report Type: Report from Study
  Country: MX (occurrence: MX)
  Receive Date: 20220630
  Receipt Date: 20220901
  Transmission Date: 20221027
  Serious: Yes (Death)
  Sender: FDA-Public Use
  Company Number: MX-NOVARTISPH-NVSC2022MX149249

PATIENT
  Age: 65 Year
  Sex: Male

DRUGS (2)
  1. METFORMIN HYDROCHLORIDE\VILDAGLIPTIN [Suspect]
     Active Substance: METFORMIN HYDROCHLORIDE\VILDAGLIPTIN
     Indication: Diabetes mellitus
     Dosage: 1 DOSAGE FORM, QD (9 MONTHS AGO)
     Route: 048
  2. METFORMIN HYDROCHLORIDE\VILDAGLIPTIN [Suspect]
     Active Substance: METFORMIN HYDROCHLORIDE\VILDAGLIPTIN
     Dosage: 2 DOSAGE FORM OF 50/850 MG, QD (EXACT STOP DATE WAS UNKNOWN)
     Route: 048
     Dates: start: 202204, end: 202206

REACTIONS (3)
  - Infarction [Fatal]
  - Ill-defined disorder [Fatal]
  - Blood glucose increased [Fatal]

NARRATIVE: CASE EVENT DATE: 20220614
